FAERS Safety Report 8121960-1 (Version None)
Quarter: 2012Q1

REPORT INFORMATION
  Report Type: 
  Country: None (occurrence: None)
  Receive Date: 20120207
  Receipt Date: 20120207
  Transmission Date: 20120608
  Serious: Yes (Other)
  Sender: FDA-Public Use
  Company Number: None

PATIENT
  Sex: Male

DRUGS (1)
  1. NORVIR [Suspect]
     Dosage: ORAL 1 Q12H
     Route: 048
     Dates: start: 20110917, end: 20111122

REACTIONS (6)
  - NAUSEA [None]
  - LOSS OF CONSCIOUSNESS [None]
  - APHAGIA [None]
  - DIARRHOEA [None]
  - VOMITING [None]
  - ABDOMINAL DISCOMFORT [None]
